FAERS Safety Report 25126192 (Version 2)
Quarter: 2025Q1

REPORT INFORMATION
  Report Type: Spontaneous
  Country: JP (occurrence: JP)
  Receive Date: 20250326
  Receipt Date: 20250326
  Transmission Date: 20250408
  Serious: Yes (Death)
  Sender: SANOFI AVENTIS
  Company Number: JP-SAKK-2025SA085374AA

PATIENT
  Sex: Female

DRUGS (1)
  1. CEREZYME [Suspect]
     Active Substance: IMIGLUCERASE
     Indication: Gaucher^s disease
     Route: 041

REACTIONS (1)
  - Disease progression [Fatal]
